FAERS Safety Report 4489510-9 (Version None)
Quarter: 2004Q4

REPORT INFORMATION
  Report Type: 
  Country: None (occurrence: None)
  Receive Date: 20041028
  Receipt Date: 20041015
  Transmission Date: 20050328
  Serious: Yes (Death, Life-Threatening)
  Sender: FDA-Public Use
  Company Number: HQWYE786915OCT04

PATIENT
  Age: 90 Year
  Sex: Female

DRUGS (9)
  1. CORDARONE [Suspect]
     Dosage: 200 MG, 5/WEEK ORAL
     Route: 048
     Dates: end: 20040710
  2. COUMADIN [Suspect]
     Dosage: 2 MG AND 1 MG EVERY OTHER DAY ORAL
     Route: 048
     Dates: end: 20040710
  3. PRAVASTATIN [Suspect]
     Indication: HYPERCHOLESTEROLAEMIA
     Dosage: 20 MG ORAL
     Route: 048
     Dates: end: 20040710
  4. CITALOPRAM HYDROBROMIDE [Suspect]
     Indication: DEPRESSION
     Dosage: 10 MG 2X PER 1 DAY ORAL
     Route: 048
     Dates: end: 20040710
  5. BETAHISTINE (BETAHISTINE) [Concomitant]
  6. CLONAZEPAM [Concomitant]
  7. COVERSYL (PERINDOPRIL) [Concomitant]
  8. DIGOXIN [Concomitant]
  9. OMEPRAZOLE [Concomitant]

REACTIONS (9)
  - CEREBRAL ISCHAEMIA [None]
  - COMA [None]
  - CONFUSIONAL STATE [None]
  - EXTRAPYRAMIDAL DISORDER [None]
  - HAEMATOMA [None]
  - HEMIPLEGIA [None]
  - NERVOUS SYSTEM DISORDER [None]
  - SUBDURAL HAEMATOMA [None]
  - WOUND [None]
